FAERS Safety Report 9238150 (Version 1)
Quarter: 2013Q2

REPORT INFORMATION
  Report Type: Report from Study
  Country: JP (occurrence: JP)
  Receive Date: 20130418
  Receipt Date: 20130418
  Transmission Date: 20140414
  Serious: Yes (Death, Life-Threatening, Hospitalization)
  Sender: FDA-Public Use
  Company Number: PHHO2004JP06943

PATIENT
  Age: 39 Year
  Sex: Female

DRUGS (1)
  1. CGP 57148B [Suspect]
     Indication: GASTROINTESTINAL STROMAL TUMOUR
     Dosage: 400 MG, DAILY
     Route: 048
     Dates: start: 20030821, end: 20040106

REACTIONS (9)
  - Endocarditis bacterial [Fatal]
  - Tumour necrosis [Unknown]
  - Abdominal abscess [Recovering/Resolving]
  - Liver abscess [Recovered/Resolved]
  - White blood cell count decreased [Recovering/Resolving]
  - Sepsis [Recovered/Resolved]
  - Disseminated intravascular coagulation [Recovered/Resolved]
  - Renal failure [Recovered/Resolved]
  - Cholangitis [Recovering/Resolving]
